FAERS Safety Report 21922649 (Version 2)
Quarter: 2023Q2

REPORT INFORMATION
  Report Type: Spontaneous
  Country: US (occurrence: US)
  Receive Date: 20230128
  Receipt Date: 20230507
  Transmission Date: 20230722
  Serious: Yes (Other)
  Sender: FDA-Public Use
  Company Number: US-ALXN-A202300845

PATIENT
  Age: 10 Year
  Sex: Male

DRUGS (2)
  1. SOLIRIS [Suspect]
     Active Substance: ECULIZUMAB
     Indication: Thrombotic microangiopathy
     Dosage: UNK
     Route: 065
  2. SOLIRIS [Suspect]
     Active Substance: ECULIZUMAB
     Indication: Off label use

REACTIONS (6)
  - Thrombotic microangiopathy [Unknown]
  - Graft versus host disease [Unknown]
  - Condition aggravated [Unknown]
  - Polyomavirus viraemia [Unknown]
  - Off label use [Unknown]
  - Viruria [Unknown]
